FAERS Safety Report 5849930-4 (Version None)
Quarter: 2008Q3

REPORT INFORMATION
  Report Type: 
  Country: None (occurrence: None)
  Receive Date: 20080819
  Receipt Date: 20080818
  Transmission Date: 20090109
  Serious: Yes (Hospitalization)
  Sender: FDA-Public Use
  Company Number: FR-BRISTOL-MYERS SQUIBB COMPANY-14300032

PATIENT
  Sex: Male

DRUGS (5)
  1. COUMADIN [Suspect]
     Indication: DEEP VEIN THROMBOSIS
     Dosage: INTERRUPTED ON 21MAR07 REINTRODUCED 24MAR07(1.5 TABLETS DAILY)
     Route: 048
     Dates: start: 20061001, end: 20070321
  2. ZYLORIC [Suspect]
     Route: 048
  3. ZESTRIL [Concomitant]
  4. MOPRAL [Concomitant]
     Dosage: MOPRAL 20 MG ENTERIC-COATED TABS
  5. LASIX [Concomitant]
     Dosage: LASILIX SPECIAL 500 MG

REACTIONS (5)
  - ANAEMIA [None]
  - EPISTAXIS [None]
  - ERYSIPELAS [None]
  - GENERAL PHYSICAL HEALTH DETERIORATION [None]
  - INTERNATIONAL NORMALISED RATIO INCREASED [None]
